FAERS Safety Report 4769854-3 (Version None)
Quarter: 2005Q3

REPORT INFORMATION
  Report Type: 
  Country: None (occurrence: None)
  Receive Date: 20050906
  Receipt Date: 20050803
  Transmission Date: 20060218
  Serious: Yes (Other)
  Sender: FDA-Public Use
  Company Number: DSA_26858_2005

PATIENT
  Sex: Female

DRUGS (5)
  1. CARDIZEM LA [Suspect]
     Indication: MITRAL VALVE REPLACEMENT
     Dosage: 360 MG Q DAY
     Dates: start: 20050726, end: 20050803
  2. COUMADIN [Suspect]
     Dosage: VAR Q DAY
     Dates: end: 20050801
  3. COUMADIN [Suspect]
     Dosage: VAR Q DAY
     Dates: start: 20050801
  4. VITAMINS [Concomitant]
  5. UNSPECIFIED MEDICATIONS [Concomitant]

REACTIONS (2)
  - DRUG INTERACTION [None]
  - PROTHROMBIN TIME PROLONGED [None]
